FAERS Safety Report 6399095-8 (Version None)
Quarter: 2009Q4

REPORT INFORMATION
  Report Type: 
  Country: None (occurrence: None)
  Receive Date: 20091013
  Receipt Date: 20091007
  Transmission Date: 20100525
  Serious: Yes (Death, Hospitalization)
  Sender: FDA-Public Use
  Company Number: US-GILEAD-2009-0024673

PATIENT
  Sex: Male

DRUGS (10)
  1. LETAIRIS [Suspect]
     Indication: PULMONARY ARTERIAL HYPERTENSION
     Route: 048
     Dates: start: 20081001
  2. WARFARIN SODIUM [Concomitant]
  3. LASIX [Concomitant]
  4. NIFEDIPINE [Concomitant]
  5. SPIRIVA [Concomitant]
  6. CILOSTAZOL [Concomitant]
  7. CRESTOR [Concomitant]
  8. LEVOTHYROXINE [Concomitant]
  9. OMEPRAZOLE [Concomitant]
  10. IRON [Concomitant]

REACTIONS (2)
  - MULTI-ORGAN FAILURE [None]
  - SEPSIS [None]
